FAERS Safety Report 9960333 (Version 1)
Quarter: 2014Q1

REPORT INFORMATION
  Report Type: Report from Study
  Country: AU (occurrence: AU)
  Receive Date: 20140305
  Receipt Date: 20140305
  Transmission Date: 20141002
  Serious: Yes (Other)
  Sender: FDA-Public Use
  Company Number: AU-SA-2014SA022689

PATIENT
  Age: 79 Year
  Sex: Male

DRUGS (11)
  1. ARAVA [Suspect]
     Indication: PRODUCT USED FOR UNKNOWN INDICATION
     Route: 048
     Dates: start: 20081101
  2. ENDEP [Suspect]
     Indication: PAIN
     Route: 048
     Dates: start: 201402
  3. PLAQUENIL [Concomitant]
  4. ZYLOPRIM [Concomitant]
  5. ATACAND [Concomitant]
  6. LIPITOR [Concomitant]
  7. NEXIUM [Concomitant]
  8. ZANIDIP [Concomitant]
  9. CARDIPRIN [Concomitant]
  10. PREDNISONE [Concomitant]
  11. PARACETAMOL [Concomitant]

REACTIONS (3)
  - Spinal operation [Unknown]
  - Intervertebral disc disorder [Not Recovered/Not Resolved]
  - Hallucination [Not Recovered/Not Resolved]
